FAERS Safety Report 5949382-X (Version None)
Quarter: 2008Q4

REPORT INFORMATION
  Report Type: 
  Country: None (occurrence: None)
  Receive Date: 20081112
  Receipt Date: 20081015
  Transmission Date: 20090506
  Serious: Yes (Hospitalization, Other)
  Sender: FDA-Public Use
  Company Number: PHHO2007JP11009

PATIENT
  Sex: Male
  Weight: 53 kg

DRUGS (30)
  1. TASIGNA [Suspect]
     Indication: ACUTE LYMPHOCYTIC LEUKAEMIA
     Dosage: 200 MG, QD
     Route: 048
     Dates: start: 20060802, end: 20060804
  2. TASIGNA [Suspect]
     Dosage: 400 MG, QD
     Route: 048
     Dates: start: 20060805, end: 20060825
  3. INDOMETHACIN [Concomitant]
     Indication: ORAL PAIN
  4. CRAVIT [Concomitant]
     Indication: NASOPHARYNGITIS
  5. VEEN D [Concomitant]
     Indication: EATING DISORDER
  6. SOLITA T [Concomitant]
     Indication: EATING DISORDER
  7. ZOVIRAX [Concomitant]
  8. NEO-MINOPHAGEN C [Concomitant]
  9. VALTREX [Concomitant]
  10. LOXONIN [Concomitant]
     Indication: PYREXIA
  11. SELBEX [Concomitant]
     Indication: ABDOMINAL DISCOMFORT
  12. NEGMIN [Concomitant]
     Indication: STOMATITIS
  13. URSO 250 [Concomitant]
     Indication: BLOOD BILIRUBIN INCREASED
  14. FLOMAX [Concomitant]
     Indication: NASOPHARYNGITIS
  15. DASEN [Concomitant]
     Indication: NASOPHARYNGITIS
  16. ASVERIN [Concomitant]
     Indication: NASOPHARYNGITIS
  17. HACHIAZULE [Concomitant]
  18. PHENOBARBITAL TAB [Concomitant]
  19. TRANSAMIN [Concomitant]
  20. PENTAZOCINE LACTATE [Concomitant]
  21. ADONA [Concomitant]
  22. MYSER [Concomitant]
  23. SODIUM ALGINATE [Concomitant]
  24. POSTERISAN [Concomitant]
  25. IMMUNE GLOBULIN INTRAVENOUS (HUMAN) [Concomitant]
  26. DIFLUCAN [Concomitant]
  27. COTRIM [Concomitant]
  28. CEFAMEZIN [Concomitant]
  29. FAMOTIDINE [Concomitant]
  30. GASTER D [Concomitant]

REACTIONS (27)
  - ACUTE LYMPHOCYTIC LEUKAEMIA RECURRENT [None]
  - BLAST CELLS PRESENT [None]
  - BLAST CRISIS IN MYELOGENOUS LEUKAEMIA [None]
  - BONE MARROW TRANSPLANT [None]
  - BRAIN OEDEMA [None]
  - CANDIDIASIS [None]
  - CATHETER PLACEMENT [None]
  - CATHETER RELATED INFECTION [None]
  - CATHETER REMOVAL [None]
  - CEREBRAL VENTRICLE DILATATION [None]
  - CONDITION AGGRAVATED [None]
  - CSF CELL COUNT INCREASED [None]
  - DIZZINESS [None]
  - DIZZINESS POSTURAL [None]
  - EAR DISORDER [None]
  - ENCEPHALITIS [None]
  - HEADACHE [None]
  - HYDROCEPHALUS [None]
  - INTRACRANIAL PRESSURE INCREASED [None]
  - LEUKAEMIC INFILTRATION BRAIN [None]
  - LOSS OF CONSCIOUSNESS [None]
  - MENINGITIS FUNGAL [None]
  - NECK PAIN [None]
  - PANCYTOPENIA [None]
  - PINEAL NEOPLASM [None]
  - STAPHYLOCOCCAL INFECTION [None]
  - VENTRICULAR DRAINAGE [None]
